FAERS Safety Report 20157624 (Version 2)
Quarter: 2021Q4

REPORT INFORMATION
  Report Type: Spontaneous
  Country: AU (occurrence: AU)
  Receive Date: 20211207
  Receipt Date: 20211217
  Transmission Date: 20220303
  Serious: No
  Sender: FDA-Public Use
  Company Number: AU-UCBSA-2021057057

PATIENT
  Sex: Male

DRUGS (3)
  1. NEUPRO [Suspect]
     Active Substance: ROTIGOTINE
     Indication: Product used for unknown indication
     Dosage: 2MG
     Dates: start: 202109
  2. NEUPRO [Suspect]
     Active Substance: ROTIGOTINE
     Dosage: 4MG
  3. NEUPRO [Suspect]
     Active Substance: ROTIGOTINE
     Dosage: 6MG

REACTIONS (1)
  - Device adhesion issue [Unknown]
